FAERS Safety Report 17127661 (Version 1)
Quarter: 2019Q4

REPORT INFORMATION
  Report Type: Report from Study
  Country: IT (occurrence: IT)
  Receive Date: 20191209
  Receipt Date: 20191209
  Transmission Date: 20200122
  Serious: Yes (Hospitalization)
  Sender: FDA-Public Use
  Company Number: IT-ROCHE-2489867

PATIENT
  Age: 63 Year
  Sex: Male
  Weight: 62 kg

DRUGS (9)
  1. PARACETAMOL [Concomitant]
     Active Substance: ACETAMINOPHEN
     Indication: PAIN
     Route: 048
     Dates: start: 20190618
  2. BEVACIZUMAB. [Suspect]
     Active Substance: BEVACIZUMAB
     Indication: COLORECTAL CANCER METASTATIC
     Dosage: DATE OF LAST DOSE (300 MG) PRIOR TO EVENT ONSET: 18/OCT/2019
     Route: 042
     Dates: start: 20190627
  3. HEPARIN [Concomitant]
     Active Substance: HEPARIN SODIUM
     Route: 058
     Dates: start: 20190619
  4. OXALIPLATIN. [Suspect]
     Active Substance: OXALIPLATIN
     Indication: COLORECTAL CANCER METASTATIC
     Dosage: DATE OF MOST RECENT DOSE (160 MG) ADMINISTORED PRIOR TO SAE: 18/OCT/2019.
     Route: 042
     Dates: start: 20190627
  5. URSOLIC ACID [Concomitant]
     Active Substance: DIETARY SUPPLEMENT
     Route: 048
     Dates: start: 20190619
  6. TAPENTADOL [Concomitant]
     Active Substance: TAPENTADOL
     Indication: PAIN
     Route: 048
     Dates: start: 20190618
  7. IRINOTECAN [Suspect]
     Active Substance: IRINOTECAN
     Indication: COLORECTAL CANCER METASTATIC
     Dosage: DATE OF MOST RECENT DOSE (210 MG) ADMINISTORED PRIOR TO SAE: 18/OCT/2019.
     Route: 042
     Dates: start: 20190627
  8. LEVOXACIN [Concomitant]
     Active Substance: LEVOFLOXACIN
  9. FLUOROURACIL. [Suspect]
     Active Substance: FLUOROURACIL
     Indication: COLORECTAL CANCER METASTATIC
     Dosage: DATE OF LAST DOSE (3800) PRIOR TO EVENT ONSET: 18/OCT/2019
     Route: 042
     Dates: start: 20190627

REACTIONS (3)
  - Pyrexia [Recovered/Resolved]
  - Device related thrombosis [Recovered/Resolved]
  - Anaemia [Not Recovered/Not Resolved]

NARRATIVE: CASE EVENT DATE: 20191106
